FAERS Safety Report 8501643-6 (Version None)
Quarter: 2012Q3

REPORT INFORMATION
  Report Type: 
  Country: None (occurrence: None)
  Receive Date: 20120711
  Receipt Date: 20120702
  Transmission Date: 20120928
  Serious: Yes (Hospitalization)
  Sender: FDA-Public Use
  Company Number: US-BIOGENIDEC-2012BI017124

PATIENT
  Age: 39 Year
  Sex: Female
  Weight: 46 kg

DRUGS (19)
  1. DURAGESIC-100 [Concomitant]
     Route: 062
  2. OXYCONTIN [Concomitant]
     Route: 048
  3. TYSABRI [Suspect]
     Indication: CROHN'S DISEASE
     Route: 042
     Dates: start: 20110810
  4. SINGULAIR [Concomitant]
     Route: 048
  5. ATIVAN [Concomitant]
     Route: 048
  6. NYSTOP [Concomitant]
     Route: 061
  7. PHENERGAN HCL [Concomitant]
     Route: 048
  8. PROVENTIL [Concomitant]
     Route: 055
  9. DULERA [Concomitant]
     Route: 055
  10. OXYCODONE HCL [Concomitant]
     Route: 048
  11. PROTONIX [Concomitant]
     Route: 048
  12. VIOKASE 16 [Concomitant]
     Route: 048
  13. VITAMIN D [Concomitant]
     Route: 048
  14. CELEXA [Concomitant]
     Route: 048
  15. DESYREL [Concomitant]
     Route: 048
  16. TPN [Concomitant]
     Route: 042
  17. DALTEPARIN SODIUM [Concomitant]
     Route: 058
  18. PRILOSEC OTC [Concomitant]
     Route: 048
  19. DESYREL [Concomitant]
     Indication: INSOMNIA
     Route: 048

REACTIONS (2)
  - HEPATITIS [None]
  - PYREXIA [None]
